FAERS Safety Report 12929358 (Version 1)
Quarter: 2016Q4

REPORT INFORMATION
  Report Type: Report from Study
  Country: None (occurrence: US)
  Receive Date: 20161110
  Receipt Date: 20161110
  Transmission Date: 20170207
  Serious: Yes (Other)
  Sender: FDA-Public Use
  Company Number: US-ENDO PHARMACEUTICALS INC.-2016-006627

PATIENT
  Age: 2 Year
  Sex: Male
  Weight: 2.73 kg

DRUGS (9)
  1. PERCOCET [Concomitant]
     Active Substance: ACETAMINOPHEN\OXYCODONE HYDROCHLORIDE
     Indication: ARTHRALGIA
     Route: 064
  2. BENAZEPRIL [Concomitant]
     Active Substance: BENAZEPRIL HYDROCHLORIDE
     Indication: HYPERTENSION
     Route: 064
     Dates: end: 20130325
  3. ZOLPIDEM TARTRATE TABLETS 10MG [Concomitant]
     Active Substance: ZOLPIDEM TARTRATE
     Indication: INSOMNIA
     Route: 064
     Dates: end: 20130325
  4. MORPHINE SULFATE ER 15MG [Concomitant]
     Active Substance: MORPHINE SULFATE
     Indication: ARTHRALGIA
     Route: 064
  5. BENAZEPRIL [Concomitant]
     Active Substance: BENAZEPRIL HYDROCHLORIDE
     Indication: NEPHRITIS
  6. MYCOPHENOLATE MOFETIL CAPSULES [Suspect]
     Active Substance: MYCOPHENOLATE MOFETIL
     Indication: LUPUS NEPHRITIS
     Route: 064
     Dates: start: 20050523, end: 20130325
  7. PREDNISONE TABLETS 5MG [Concomitant]
     Active Substance: PREDNISONE
     Indication: SYSTEMIC LUPUS ERYTHEMATOSUS
     Route: 064
     Dates: start: 2005
  8. PLAQUENIL [Concomitant]
     Active Substance: HYDROXYCHLOROQUINE SULFATE
     Indication: SYSTEMIC LUPUS ERYTHEMATOSUS
     Route: 064
  9. ATENOLOL TABLETS 25 MG [Concomitant]
     Indication: HYPERTENSION
     Route: 064
     Dates: end: 20130325

REACTIONS (4)
  - Foetal growth restriction [Unknown]
  - Microcephaly [Unknown]
  - Speech disorder developmental [Unknown]
  - Eczema [Unknown]

NARRATIVE: CASE EVENT DATE: 20131002
